FAERS Safety Report 25499009 (Version 1)
Quarter: 2025Q3

REPORT INFORMATION
  Report Type: Spontaneous
  Country: GB (occurrence: GB)
  Receive Date: 20250701
  Receipt Date: 20250701
  Transmission Date: 20251021
  Serious: Yes (Death, Life-Threatening, Other)
  Sender: B. BRAUN MEDICAL INC.
  Company Number: None

PATIENT
  Age: 83 Year
  Sex: Female
  Weight: 55 kg

DRUGS (2)
  1. ACETAMINOPHEN [Suspect]
     Active Substance: ACETAMINOPHEN
  2. FLUCLOXACILLIN [Suspect]
     Active Substance: FLUCLOXACILLIN
     Indication: Osteomyelitis
     Dosage: 1 G QDS;
     Dates: start: 20250320

REACTIONS (2)
  - Metabolic acidosis [Fatal]
  - Drug interaction [Unknown]

NARRATIVE: CASE EVENT DATE: 20250330
